FAERS Safety Report 6092792-3 (Version None)
Quarter: 2009Q1

REPORT INFORMATION
  Report Type: 
  Country: None (occurrence: None)
  Receive Date: 20090225
  Receipt Date: 20090213
  Transmission Date: 20090719
  Serious: Yes (Other)
  Sender: FDA-Public Use
  Company Number: GR-ROCHE-616056

PATIENT
  Age: 41 Year
  Sex: Female

DRUGS (5)
  1. MYCOPHENOLATE MOFETIL [Suspect]
     Dosage: IN 2 DIVIDED DOSES IMMEDIATELY AFTER TRANSPLANTATION
     Route: 065
  2. METHYLPREDNISOLONE 4MG TAB [Suspect]
     Dosage: ON THE DAY OF SURGERY
     Route: 042
  3. METHYLPREDNISOLONE 4MG TAB [Suspect]
     Dosage: ON THE FIRST POST-SURGICAL DAY
     Route: 042
  4. METHYLPREDNISOLONE 4MG TAB [Suspect]
     Dosage: 16MG ORALLY FOR 2 WEEKS WITH A GRADUAL REDUCTION, WITH TARGET OF 8MG AT THREE MONTHS POST-TRANSPLANT
     Route: 042
  5. CYCLOSPORINE [Suspect]
     Dosage: FROM THE DAY OF THE ALLOGRAFT STARTING TO FUNCTION
     Route: 065

REACTIONS (2)
  - COMPLICATIONS OF TRANSPLANTED KIDNEY [None]
  - FOCAL SEGMENTAL GLOMERULOSCLEROSIS [None]
